FAERS Safety Report 8285746-X (Version None)
Quarter: 2012Q2

REPORT INFORMATION
  Report Type: 
  Country: None (occurrence: None)
  Receive Date: 20120413
  Receipt Date: 20120405
  Transmission Date: 20120825
  Serious: Yes (Disabling, Other)
  Sender: FDA-Public Use
  Company Number: NL-ELI_LILLY_AND_COMPANY-NL201203005128

PATIENT
  Sex: Female

DRUGS (4)
  1. CALCIUM CARBONATE [Concomitant]
  2. FORTEO [Suspect]
     Indication: SPINAL COMPRESSION FRACTURE
     Dosage: 20 UG, QD
     Dates: start: 20120101
  3. ACTONEL [Concomitant]
  4. FORTEO [Suspect]
     Dosage: 20 UG, QD

REACTIONS (3)
  - MOBILITY DECREASED [None]
  - GROIN PAIN [None]
  - BONE PAIN [None]
